FAERS Safety Report 16384867 (Version 4)
Quarter: 2019Q4

REPORT INFORMATION
  Report Type: Spontaneous
  Country: US (occurrence: US)
  Receive Date: 20190603
  Receipt Date: 20191007
  Transmission Date: 20200122
  Serious: Yes (Hospitalization, Other)
  Sender: FDA-Public Use
  Company Number: US-ASTRAZENECA-2019SE80276

PATIENT
  Age: 16499 Day
  Sex: Male

DRUGS (56)
  1. NEXIUM [Suspect]
     Active Substance: ESOMEPRAZOLE MAGNESIUM
     Indication: GASTROOESOPHAGEAL REFLUX DISEASE
     Route: 048
     Dates: start: 2007, end: 2010
  2. PRILOSEC [Suspect]
     Active Substance: OMEPRAZOLE MAGNESIUM
     Indication: GASTROOESOPHAGEAL REFLUX DISEASE
     Route: 048
     Dates: start: 2008, end: 2009
  3. PREVACID [Suspect]
     Active Substance: LANSOPRAZOLE
     Indication: GASTROOESOPHAGEAL REFLUX DISEASE
     Route: 065
     Dates: start: 2010
  4. PROTONIX [Suspect]
     Active Substance: PANTOPRAZOLE SODIUM
     Indication: GASTROOESOPHAGEAL REFLUX DISEASE
     Route: 065
     Dates: start: 2011
  5. BYSTOLIC [Concomitant]
     Active Substance: NEBIVOLOL HYDROCHLORIDE
  6. SOMA [Concomitant]
     Active Substance: CARISOPRODOL
  7. HEPARIN [Concomitant]
     Active Substance: HEPARIN SODIUM
  8. BENADRYL [Concomitant]
     Active Substance: DIPHENHYDRAMINE HYDROCHLORIDE
  9. HUMALOG [Concomitant]
     Active Substance: INSULIN LISPRO
  10. SUCRALFATE. [Concomitant]
     Active Substance: SUCRALFATE
  11. LANTUS [Concomitant]
     Active Substance: INSULIN GLARGINE
     Indication: DIABETES MELLITUS
     Route: 065
     Dates: start: 2008
  12. FENOFIBRATE. [Concomitant]
     Active Substance: FENOFIBRATE
     Route: 065
     Dates: start: 2008
  13. ACETAMINOPHEN. [Concomitant]
     Active Substance: ACETAMINOPHEN
  14. HYDRALAZINE [Concomitant]
     Active Substance: HYDRALAZINE HYDROCHLORIDE
  15. PIPERACILLIN. [Concomitant]
     Active Substance: PIPERACILLIN SODIUM
  16. HYDROCODONE [Concomitant]
     Active Substance: HYDROCODONE
     Indication: PAIN
     Route: 065
     Dates: start: 2008, end: 2011
  17. LABETALOL [Concomitant]
     Active Substance: LABETALOL\LABETALOL HYDROCHLORIDE
  18. TOPROL XL [Concomitant]
     Active Substance: METOPROLOL SUCCINATE
  19. BACLOFEN. [Concomitant]
     Active Substance: BACLOFEN
  20. PRILOSEC [Suspect]
     Active Substance: OMEPRAZOLE MAGNESIUM
     Indication: GASTROOESOPHAGEAL REFLUX DISEASE
     Route: 048
     Dates: start: 1990, end: 2018
  21. DOXYCYCLINE HYCLATE. [Concomitant]
     Active Substance: DOXYCYCLINE HYCLATE
  22. PROMETHAZINE [Concomitant]
     Active Substance: PROMETHAZINE HYDROCHLORIDE
  23. VANCOMYCIN [Concomitant]
     Active Substance: VANCOMYCIN
  24. BACTROBAN [Concomitant]
     Active Substance: MUPIROCIN\MUPIROCIN CALCIUM
  25. ASPIRIN. [Concomitant]
     Active Substance: ASPIRIN
  26. NEXIUM [Suspect]
     Active Substance: ESOMEPRAZOLE MAGNESIUM
     Indication: GASTROOESOPHAGEAL REFLUX DISEASE
     Route: 048
     Dates: start: 1990, end: 2018
  27. PROTONIX [Suspect]
     Active Substance: PANTOPRAZOLE SODIUM
     Indication: GASTROOESOPHAGEAL REFLUX DISEASE
     Dosage: GENERIC
     Route: 065
     Dates: start: 2012
  28. OXYCODONE [Concomitant]
     Active Substance: OXYCODONE
     Indication: PAIN
     Route: 065
     Dates: start: 2010, end: 2011
  29. TEMAZEPAM. [Concomitant]
     Active Substance: TEMAZEPAM
     Indication: INSOMNIA
     Route: 065
     Dates: start: 2007
  30. WARFARIN SODIUM. [Concomitant]
     Active Substance: WARFARIN SODIUM
  31. CEFDINIR. [Concomitant]
     Active Substance: CEFDINIR
  32. FLUCONAZOLE. [Concomitant]
     Active Substance: FLUCONAZOLE
  33. ISOSORBIDE DINITRATE. [Concomitant]
     Active Substance: ISOSORBIDE DINITRATE
  34. ERYC [Concomitant]
     Active Substance: ERYTHROMYCIN
  35. ALBUTEROL. [Concomitant]
     Active Substance: ALBUTEROL
  36. BACTRIM [Concomitant]
     Active Substance: SULFAMETHOXAZOLE\TRIMETHOPRIM
  37. PEPCID [Concomitant]
     Active Substance: FAMOTIDINE
  38. ALLOPURINOL. [Concomitant]
     Active Substance: ALLOPURINOL
  39. CLONIDINE. [Concomitant]
     Active Substance: CLONIDINE
  40. DULOXETINE HCL [Concomitant]
     Active Substance: DULOXETINE HYDROCHLORIDE
  41. PROCARDIA [Concomitant]
     Active Substance: NIFEDIPINE
  42. NEXIUM [Suspect]
     Active Substance: ESOMEPRAZOLE MAGNESIUM
     Indication: GASTROOESOPHAGEAL REFLUX DISEASE
     Route: 048
  43. PRILOSEC [Suspect]
     Active Substance: OMEPRAZOLE MAGNESIUM
     Indication: GASTROOESOPHAGEAL REFLUX DISEASE
     Dosage: GENERIC
     Route: 065
  44. PRILOSEC [Suspect]
     Active Substance: OMEPRAZOLE MAGNESIUM
     Indication: GASTROOESOPHAGEAL REFLUX DISEASE
     Route: 048
     Dates: start: 2011
  45. PRILOSEC [Suspect]
     Active Substance: OMEPRAZOLE MAGNESIUM
     Indication: GASTROOESOPHAGEAL REFLUX DISEASE
     Route: 048
     Dates: start: 2017
  46. PREVACID [Suspect]
     Active Substance: LANSOPRAZOLE
     Indication: GASTROOESOPHAGEAL REFLUX DISEASE
     Route: 065
     Dates: start: 1990, end: 2018
  47. PROTONIX [Suspect]
     Active Substance: PANTOPRAZOLE SODIUM
     Indication: GASTROOESOPHAGEAL REFLUX DISEASE
     Route: 065
     Dates: start: 1990, end: 2018
  48. OXYCODONE [Concomitant]
     Active Substance: OXYCODONE
     Indication: PAIN
     Route: 065
     Dates: start: 2015, end: 2018
  49. METOPROLOL TARTRATE. [Concomitant]
     Active Substance: METOPROLOL TARTRATE
     Indication: HYPERTENSION
     Route: 065
     Dates: start: 2007
  50. TIZANIDINE. [Concomitant]
     Active Substance: TIZANIDINE
  51. ZOFRAN [Concomitant]
     Active Substance: ONDANSETRON HYDROCHLORIDE
  52. NORVASC [Concomitant]
     Active Substance: AMLODIPINE BESYLATE
  53. DILAUDID [Concomitant]
     Active Substance: HYDROMORPHONE HYDROCHLORIDE
  54. PHENERGAN [Concomitant]
     Active Substance: PROMETHAZINE HYDROCHLORIDE
  55. SEROQUEL [Concomitant]
     Active Substance: QUETIAPINE FUMARATE
  56. LEVOFLOX [Concomitant]
     Active Substance: LEVOFLOXACIN

REACTIONS (7)
  - End stage renal disease [Not Recovered/Not Resolved]
  - Hyperparathyroidism secondary [Unknown]
  - Acute kidney injury [Not Recovered/Not Resolved]
  - Chronic kidney disease-mineral and bone disorder [Unknown]
  - Renal failure [Unknown]
  - Nephrogenic anaemia [Unknown]
  - Chronic kidney disease [Not Recovered/Not Resolved]

NARRATIVE: CASE EVENT DATE: 20120823
